FAERS Safety Report 7596771-6 (Version None)
Quarter: 2011Q3

REPORT INFORMATION
  Report Type: 
  Country: None (occurrence: None)
  Receive Date: 20110708
  Receipt Date: 20110705
  Transmission Date: 20111222
  Serious: No
  Sender: FDA-Public Use
  Company Number: US-PFIZER INC-2011151489

PATIENT
  Sex: Female

DRUGS (7)
  1. LASIX [Concomitant]
     Dosage: 20 MG, DAILY
  2. ALTACE [Concomitant]
     Indication: HYPERTENSION
     Dosage: 5 MG, DAILY
     Dates: start: 20110601
  3. NORVASC [Suspect]
     Indication: HYPERTENSION
     Dosage: 10 MG, DAILY
     Route: 048
     Dates: start: 20040101, end: 20110601
  4. PLAVIX [Concomitant]
     Indication: PROPHYLAXIS
     Dosage: 75 MG, DAILY
  5. METFORMIN [Concomitant]
     Indication: DIABETES MELLITUS
     Dosage: 500MG IN THE MORNING AND 1000 MG AT NIGHT
  6. ZOCOR [Concomitant]
     Indication: BLOOD CHOLESTEROL INCREASED
     Dosage: 20 MG, DAILY
  7. TOPROL-XL [Concomitant]
     Dosage: 50 MG, DAILY

REACTIONS (2)
  - HEADACHE [None]
  - OEDEMA PERIPHERAL [None]
